FAERS Safety Report 4332635-9 (Version None)
Quarter: 2004Q1

REPORT INFORMATION
  Report Type: 
  Country: None (occurrence: None)
  Receive Date: 20040330
  Receipt Date: 20040316
  Transmission Date: 20041129
  Serious: Yes (Hospitalization)
  Sender: FDA-Public Use
  Company Number: 2004-DE-01282GD

PATIENT
  Age: 34 Year
  Sex: Female

DRUGS (1)
  1. MEXILETINE (MEXILETINE HYDROCHLORIDE) (NR) (MEXILETINE-HCL) [Suspect]
     Indication: MYOTONIA
     Dosage: 150 MG (NR, THRICE DAILY)

REACTIONS (2)
  - DRUG INEFFECTIVE [None]
  - SOMNOLENCE [None]
